FAERS Safety Report 6296753-0 (Version None)
Quarter: 2009Q3

REPORT INFORMATION
  Report Type: 
  Country: None (occurrence: None)
  Receive Date: 20090804
  Receipt Date: 20090731
  Transmission Date: 20100115
  Serious: Yes (Hospitalization)
  Sender: FDA-Public Use
  Company Number: FR-EISAI INC.-E2020-04999-SPO-FR

PATIENT
  Sex: Female

DRUGS (5)
  1. ARICEPT [Suspect]
     Indication: DRUG USE FOR UNKNOWN INDICATION
     Dosage: UNKNOWN
     Route: 048
     Dates: end: 20090201
  2. MODOPAR [Suspect]
     Indication: DRUG USE FOR UNKNOWN INDICATION
     Dosage: UNKNOWN
     Route: 048
  3. REQUIP [Suspect]
     Indication: DRUG USE FOR UNKNOWN INDICATION
     Dosage: UNKNOWN
     Route: 048
     Dates: end: 20090201
  4. PLAVIX [Concomitant]
     Dosage: UNKNOWN
     Route: 048
  5. SPIRONOLACTONE [Concomitant]
     Dosage: UNKNOWN
     Route: 048

REACTIONS (2)
  - NARCOLEPSY [None]
  - SOMNOLENCE [None]
